FAERS Safety Report 6589130-6 (Version None)
Quarter: 2010Q1

REPORT INFORMATION
  Report Type: 
  Country: None (occurrence: None)
  Receive Date: 20100212
  Receipt Date: 20100201
  Transmission Date: 20100710
  Serious: Yes (Death)
  Sender: FDA-Public Use
  Company Number: 493566

PATIENT
  Age: 63 Year
  Sex: Male
  Weight: 112 kg

DRUGS (6)
  1. FENTANYL CITRATE [Suspect]
     Dosage: 2500 MCG, ONCE, IV
     Route: 042
  2. PROPOFOL [Concomitant]
     Dosage: 300 MG, ONCE, IV
     Route: 042
  3. METHYIPREDNISOLONE SODIUM SUCCINATE FOR INJECTION [Concomitant]
  4. MIDAZOLAM HCL [Concomitant]
  5. ROCURONIUM BROMIDE [Concomitant]
  6. SUCCINYLCHOLINE CHLORIDE [Concomitant]

REACTIONS (8)
  - ALANINE AMINOTRANSFERASE DECREASED [None]
  - ANGIOEDEMA [None]
  - AREFLEXIA [None]
  - ASPARTATE AMINOTRANSFERASE INCREASED [None]
  - BLOOD CREATINE PHOSPHOKINASE INCREASED [None]
  - BLOOD PRESSURE DECREASED [None]
  - HAEMODYNAMIC INSTABILITY [None]
  - WHITE BLOOD CELL COUNT INCREASED [None]
